FAERS Safety Report 8504067-0 (Version None)
Quarter: 2012Q3

REPORT INFORMATION
  Report Type: 
  Country: None (occurrence: None)
  Receive Date: 20120711
  Receipt Date: 20120709
  Transmission Date: 20120928
  Serious: Yes (Disabling, Other)
  Sender: FDA-Public Use
  Company Number: DE-BAYER-2012-065540

PATIENT
  Age: 39 Year
  Sex: Female
  Weight: 66.984 kg

DRUGS (2)
  1. NOVOTHYRAL [Concomitant]
     Dosage: UNK
  2. MIRENA [Suspect]
     Indication: CONTRACEPTION
     Dosage: 20 ?G/D, CONT
     Route: 015
     Dates: start: 20070601, end: 20120618

REACTIONS (5)
  - HYPOTHYROIDISM [None]
  - WEIGHT INCREASED [None]
  - AUTOIMMUNE THYROIDITIS [None]
  - INTERVERTEBRAL DISC PROTRUSION [None]
  - ABASIA [None]
